FAERS Safety Report 23245708 (Version 1)
Quarter: 2023Q4

REPORT INFORMATION
  Report Type: Spontaneous
  Country: ES (occurrence: ES)
  Receive Date: 20231130
  Receipt Date: 20231130
  Transmission Date: 20240109
  Serious: Yes (Hospitalization, Other)
  Sender: FDA-Public Use
  Company Number: None

PATIENT
  Age: 80 Year
  Sex: Male

DRUGS (1)
  1. METAMIZOL SODIUM [Suspect]
     Active Substance: METAMIZOL SODIUM
     Indication: Pain
     Dosage: 2 G EVERY 8 HOURS IF REQUIRED; A SINGLE DOSE WAS ADMINISTERED
     Route: 065
     Dates: start: 20231023, end: 20231023

REACTIONS (1)
  - Agranulocytosis [Unknown]

NARRATIVE: CASE EVENT DATE: 20231027
